FAERS Safety Report 20722850 (Version 1)
Quarter: 2022Q2

REPORT INFORMATION
  Report Type: Spontaneous
  Country: NL (occurrence: NL)
  Receive Date: 20220419
  Receipt Date: 20220419
  Transmission Date: 20220721
  Serious: Yes (Death, Life-Threatening, Hospitalization, Other)
  Sender: FDA-Public Use
  Company Number: NL-ABBVIE-22K-114-4260327-00

PATIENT
  Age: 63 Year
  Sex: Male

DRUGS (6)
  1. PACLITAXEL [Interacting]
     Active Substance: PACLITAXEL
     Indication: Metastases to oesophagus
     Dosage: (100 MG/M2 ), ON DAYS 1, 8, AND 15, IN A 28- DAY CYCLE
     Dates: start: 2019
  2. RITONAVIR [Interacting]
     Active Substance: RITONAVIR
     Indication: HIV infection
  3. DARUNAVIR [Concomitant]
     Active Substance: DARUNAVIR
     Indication: HIV infection
  4. ABACAVIR [Concomitant]
     Active Substance: ABACAVIR
     Indication: HIV infection
  5. CARBOPLATIN [Concomitant]
     Active Substance: CARBOPLATIN
     Indication: Adenocarcinoma gastric
     Dosage: TARGET AUC 1/4 4 MG/MIN/ML (CALVERT) ON DAYS 1, 8, AND 15, IN A 28-DAY CYCLE
     Dates: start: 2019
  6. LAMIVUDINE [Concomitant]
     Active Substance: LAMIVUDINE
     Indication: HIV infection

REACTIONS (5)
  - Neutropenic sepsis [Fatal]
  - Toxicity to various agents [Fatal]
  - Escherichia infection [Fatal]
  - Drug interaction [Fatal]
  - Off label use [Unknown]

NARRATIVE: CASE EVENT DATE: 20190101
